APPROVED DRUG PRODUCT: ARSENIC TRIOXIDE
Active Ingredient: ARSENIC TRIOXIDE
Strength: 1MG/ML
Dosage Form/Route: INJECTABLE;INJECTION
Application: A209780 | Product #001 | TE Code: AP
Applicant: NEXUS PHARMACEUTICALS LLC
Approved: Nov 15, 2018 | RLD: No | RS: No | Type: RX